FAERS Safety Report 4355797-6 (Version None)
Quarter: 2004Q2

REPORT INFORMATION
  Report Type: 
  Country: None (occurrence: None)
  Receive Date: 20040511
  Receipt Date: 20040428
  Transmission Date: 20050107
  Serious: Yes (Other)
  Sender: FDA-Public Use
  Company Number: PHFR2004GB01934

PATIENT
  Age: 31 Year
  Sex: Male

DRUGS (3)
  1. CLOZARIL [Suspect]
     Indication: SCHIZOPHRENIA
     Dosage: 450MG/DAY
     Route: 048
     Dates: start: 20020115
  2. CLOZARIL [Suspect]
     Dosage: EXTRA 100MG DOSE GIVEN
     Route: 048
  3. VALPROATE SODIUM [Concomitant]
     Dosage: 400 MG, BID
     Route: 065

REACTIONS (4)
  - BLOOD PRESSURE INCREASED [None]
  - CONVULSION [None]
  - HEART RATE INCREASED [None]
  - MEDICATION ERROR [None]
